FAERS Safety Report 8680303 (Version 2)
Quarter: 2012Q4

REPORT INFORMATION
  Report Type: 
  Country: US (occurrence: US)
  Receive Date: 20120724
  Receipt Date: 20121004
  Transmission Date: 20130627
  Serious: No
  Sender: FDA-Public Use
  Company Number: US-ASTRAZENECA-2012SE42712

PATIENT
  Age: 63 Year
  Sex: Female
  Weight: 70.3 kg

DRUGS (1)
  1. TOPROL XL [Suspect]
     Indication: HYPERTENSION
     Route: 048
     Dates: start: 201202

REACTIONS (1)
  - Weight increased [Recovered/Resolved]
